FAERS Safety Report 24032969 (Version 3)
Quarter: 2024Q3

REPORT INFORMATION
  Report Type: Spontaneous
  Country: EG (occurrence: EG)
  Receive Date: 20240701
  Receipt Date: 20240822
  Transmission Date: 20241017
  Serious: Yes (Life-Threatening, Hospitalization, Other)
  Sender: NOVO NORDISK
  Company Number: EG-NOVOPROD-1244144

PATIENT
  Age: 408 Month
  Sex: Male

DRUGS (3)
  1. INSULIN HUMAN [Suspect]
     Active Substance: INSULIN HUMAN
     Dosage: 40 IU, QD (30U MORNING AND 10 U AT NIGHT)
     Route: 058
  2. INSULIN HUMAN [Suspect]
     Active Substance: INSULIN HUMAN
     Dosage: DOSE LARGER THAN 30 U
     Route: 058
  3. INSULIN HUMAN [Suspect]
     Active Substance: INSULIN HUMAN
     Indication: Type 1 diabetes mellitus
     Dosage: 40 IU, QD (30U MORNING AND 10 U AT NIGHT)
     Route: 058

REACTIONS (8)
  - Hyperglycaemia [Recovered/Resolved]
  - Diabetic coma [Recovered/Resolved]
  - Device failure [Unknown]
  - Device issue [Unknown]
  - Incorrect dose administered by device [Unknown]
  - Device use error [Unknown]
  - Product storage error [Unknown]
  - Wrong technique in product usage process [Unknown]
